FAERS Safety Report 22098616 (Version 1)
Quarter: 2023Q1

REPORT INFORMATION
  Report Type: Report from Study
  Country: CA (occurrence: CA)
  Receive Date: 20230315
  Receipt Date: 20230315
  Transmission Date: 20230417
  Serious: Yes (Other)
  Sender: FDA-Public Use
  Company Number: CA-BAUSCH-BL-2022-025556

PATIENT
  Sex: Female

DRUGS (3)
  1. CONTRAVE [Suspect]
     Active Substance: BUPROPION HYDROCHLORIDE\NALTREXONE HYDROCHLORIDE
     Indication: Weight control
     Dosage: 90/8 MG
     Route: 048
     Dates: start: 20221012, end: 202210
  2. CONTRAVE [Suspect]
     Active Substance: BUPROPION HYDROCHLORIDE\NALTREXONE HYDROCHLORIDE
     Dosage: 90/8 MG, 1 TABLET IN MORNING, 1 TABLET IN EVENING
     Route: 048
     Dates: start: 20221019, end: 20221115
  3. ROBAXACET [Concomitant]
     Active Substance: ACETAMINOPHEN\METHOCARBAMOL
     Indication: Pain
     Dosage: 1 IN 1 AS REQUIRED

REACTIONS (6)
  - Urinary retention [Not Recovered/Not Resolved]
  - Ligament sprain [Not Recovered/Not Resolved]
  - Therapy cessation [Unknown]
  - Inability to afford medication [Unknown]
  - Drug titration error [Unknown]
  - Product communication issue [Unknown]

NARRATIVE: CASE EVENT DATE: 20220101
